FAERS Safety Report 15603612 (Version 15)
Quarter: 2019Q4

REPORT INFORMATION
  Report Type: Report from Study
  Country: US (occurrence: US)
  Receive Date: 20181109
  Receipt Date: 20191112
  Transmission Date: 20200122
  Serious: Yes (Hospitalization, Other)
  Sender: FDA-Public Use
  Company Number: PHEH2018US046954

PATIENT
  Age: 11 Year
  Sex: Female

DRUGS (2)
  1. PREDNISONE. [Concomitant]
     Active Substance: PREDNISONE
     Indication: PRODUCT USED FOR UNKNOWN INDICATION
     Route: 065
  2. ILARIS [Suspect]
     Active Substance: CANAKINUMAB
     Indication: CRYOPYRIN ASSOCIATED PERIODIC SYNDROME
     Dosage: 60 MG, EVERY 4 WEEKS (EVERY 28 TO 30 DAYS)
     Route: 058
     Dates: start: 20170504

REACTIONS (22)
  - Pain [Unknown]
  - Urinary incontinence [Unknown]
  - Ear pain [Unknown]
  - Diarrhoea [Recovered/Resolved]
  - Vaginal lesion [Unknown]
  - Arthralgia [Unknown]
  - Pyrexia [Recovered/Resolved]
  - Pyrexia [Unknown]
  - Diarrhoea [Unknown]
  - Gastritis [Unknown]
  - Headache [Unknown]
  - Vomiting [Unknown]
  - Constipation [Not Recovered/Not Resolved]
  - Migraine [Recovering/Resolving]
  - Vertigo [Unknown]
  - Mouth ulceration [Recovering/Resolving]
  - Neuralgia [Recovered/Resolved]
  - Abdominal pain upper [Recovered/Resolved]
  - Nausea [Unknown]
  - Dizziness [Recovering/Resolving]
  - Vaginal ulceration [Unknown]
  - Therapeutic response shortened [Unknown]

NARRATIVE: CASE EVENT DATE: 20190318
